FAERS Safety Report 14474345 (Version 1)
Quarter: 2018Q1

REPORT INFORMATION
  Report Type: Spontaneous
  Country: JP (occurrence: JP)
  Receive Date: 20180201
  Receipt Date: 20180201
  Transmission Date: 20180509
  Serious: Yes (Hospitalization, Other)
  Sender: FDA-Public Use
  Company Number: JP-BAYER-2018-014199

PATIENT
  Age: 68 Year
  Sex: Male

DRUGS (3)
  1. BAYASPIRIN 100 MG [Interacting]
     Active Substance: ASPIRIN
     Indication: ATRIAL FIBRILLATION
     Dosage: UNK
     Route: 048
  2. BAYASPIRIN 100 MG [Suspect]
     Active Substance: ASPIRIN
     Indication: ATRIAL FIBRILLATION
     Dosage: 100 MG, QD
     Route: 048
  3. WARFARIN POTASSIUM [Interacting]
     Active Substance: WARFARIN POTASSIUM

REACTIONS (5)
  - Labelled drug-drug interaction medication error [None]
  - Haemorrhage [Recovered/Resolved]
  - Aortic dissection [None]
  - Drug administration error [None]
  - Haemorrhage [Not Recovered/Not Resolved]
